FAERS Safety Report 7425506-2 (Version None)
Quarter: 2011Q2

REPORT INFORMATION
  Report Type: 
  Country: None (occurrence: None)
  Receive Date: 20110420
  Receipt Date: 20110418
  Transmission Date: 20111010
  Serious: Yes (Other)
  Sender: FDA-Public Use
  Company Number: CH-PFIZER INC-2011083984

PATIENT
  Sex: Male

DRUGS (2)
  1. NEURONTIN [Suspect]
     Dosage: 7000 MG DAILY
  2. NEURONTIN [Suspect]
     Indication: PAIN
     Dosage: UNK

REACTIONS (3)
  - DRUG ABUSE [None]
  - AGGRESSION [None]
  - CONVERSION DISORDER [None]
